FAERS Safety Report 24257912 (Version 1)
Quarter: 2024Q3

REPORT INFORMATION
  Report Type: Spontaneous
  Country: TN (occurrence: TN)
  Receive Date: 20240828
  Receipt Date: 20240828
  Transmission Date: 20241017
  Serious: Yes (Other)
  Sender: AMNEAL
  Company Number: TN-AMNEAL PHARMACEUTICALS-2024-AMRX-03088

PATIENT
  Age: 51 Year

DRUGS (1)
  1. AZATHIOPRINE [Suspect]
     Active Substance: AZATHIOPRINE
     Indication: Colitis ulcerative
     Dosage: 2.5 MG/KG/DAY
     Route: 065

REACTIONS (1)
  - Chronic myeloid leukaemia [Unknown]
